FAERS Safety Report 4764909-1 (Version None)
Quarter: 2005Q3

REPORT INFORMATION
  Report Type: 
  Country: None (occurrence: None)
  Receive Date: 20050909
  Receipt Date: 20050830
  Transmission Date: 20060218
  Serious: Yes (Hospitalization)
  Sender: FDA-Public Use
  Company Number: FR-JNJFOC-20050806673

PATIENT
  Age: 57 Year
  Sex: Male

DRUGS (10)
  1. DURAGESIC-100 [Suspect]
     Route: 062
  2. DURAGESIC-100 [Suspect]
     Indication: CANCER PAIN
     Route: 062
  3. SEVREDOL [Suspect]
     Indication: CANCER PAIN
     Route: 048
  4. NEXIUM [Concomitant]
     Route: 065
  5. DUPHALAC [Concomitant]
     Route: 065
  6. SPECIAFOLDINE [Concomitant]
     Route: 065
  7. VOLTAREN [Concomitant]
     Route: 065
  8. VALIUM [Concomitant]
     Route: 065
  9. NEURONTIN [Concomitant]
     Route: 065
  10. LEXOMIL [Concomitant]
     Route: 065

REACTIONS (6)
  - ABNORMAL BEHAVIOUR [None]
  - CONFUSIONAL STATE [None]
  - DISORIENTATION [None]
  - HEART RATE INCREASED [None]
  - LOWER RESPIRATORY TRACT INFECTION [None]
  - LUNG DISORDER [None]
